FAERS Safety Report 4311838-3 (Version None)
Quarter: 2004Q1

REPORT INFORMATION
  Report Type: 
  Country: None (occurrence: None)
  Receive Date: 20040302
  Receipt Date: 20031104
  Transmission Date: 20041129
  Serious: No
  Sender: FDA-Public Use
  Company Number: 200328046BWH

PATIENT
  Age: 69 Year
  Sex: Male

DRUGS (17)
  1. LEVITRA [Suspect]
     Indication: ERECTILE DYSFUNCTION
     Dosage: 10 MG, TOTAL DAILY, ORAL; 10 MG DAILY, ORAL; 20 MG, TOTAL DAILY, ORAL
     Route: 048
     Dates: start: 20031103
  2. LEVITRA [Suspect]
     Indication: ERECTILE DYSFUNCTION
     Dosage: 10 MG, TOTAL DAILY, ORAL; 10 MG DAILY, ORAL; 20 MG, TOTAL DAILY, ORAL
     Route: 048
     Dates: start: 20031103
  3. LEVITRA [Suspect]
     Indication: ERECTILE DYSFUNCTION
     Dosage: 10 MG, TOTAL DAILY, ORAL; 10 MG DAILY, ORAL; 20 MG, TOTAL DAILY, ORAL
     Route: 048
     Dates: start: 20031111
  4. MULTIVITAM [Concomitant]
  5. VITAMIN B COMPLEX CAP [Concomitant]
  6. VITAMIN E [Concomitant]
  7. ECOTRIN [Concomitant]
  8. SAW PALMETTO [Concomitant]
  9. MONOPRIL [Concomitant]
  10. HYDROCHLOROTHIAZIDE [Concomitant]
  11. TOPROLOL [Concomitant]
  12. TRICOR [Concomitant]
  13. FOLIC ACID [Concomitant]
  14. GLIPIZIDE [Concomitant]
  15. ZOCOR [Concomitant]
  16. XALATAN [Concomitant]
  17. VIAGRA [Concomitant]

REACTIONS (2)
  - DIZZINESS [None]
  - ERECTILE DYSFUNCTION [None]
